FAERS Safety Report 7773490-4 (Version None)
Quarter: 2011Q3

REPORT INFORMATION
  Report Type: 
  Country: None (occurrence: None)
  Receive Date: 20110922
  Receipt Date: 20110912
  Transmission Date: 20111222
  Serious: Yes (Death, Other)
  Sender: FDA-Public Use
  Company Number: US-BAXTER-2011BH029003

PATIENT
  Sex: Female

DRUGS (1)
  1. DIANEAL [Suspect]
     Indication: PERITONEAL DIALYSIS
     Route: 033

REACTIONS (5)
  - SEPSIS [None]
  - PNEUMONIA [None]
  - CLOSTRIDIAL INFECTION [None]
  - RENAL FAILURE CHRONIC [None]
  - GASTROINTESTINAL HAEMORRHAGE [None]
